FAERS Safety Report 9276717 (Version 2)
Quarter: 2013Q2

REPORT INFORMATION
  Report Type: Spontaneous
  Country: US (occurrence: US)
  Receive Date: 20130507
  Receipt Date: 20130517
  Transmission Date: 20140414
  Serious: Yes (Hospitalization, Other)
  Sender: FDA-Public Use
  Company Number: PHEH2013US009912

PATIENT
  Age: 41 Year
  Sex: Male
  Weight: 95 kg

DRUGS (1)
  1. GILENYA [Suspect]
     Indication: RELAPSING-REMITTING MULTIPLE SCLEROSIS
     Dosage: 0.5 MG, QD
     Route: 048
     Dates: start: 201207, end: 20130404

REACTIONS (5)
  - Road traffic accident [Recovering/Resolving]
  - Arterial injury [Recovering/Resolving]
  - Joint injury [Recovering/Resolving]
  - Ankle fracture [Recovering/Resolving]
  - Somnolence [Unknown]
